FAERS Safety Report 14602852 (Version 1)
Quarter: 2018Q1

REPORT INFORMATION
  Report Type: Report from Study
  Country: BR (occurrence: BR)
  Receive Date: 20180306
  Receipt Date: 20180306
  Transmission Date: 20180509
  Serious: Yes (Hospitalization)
  Sender: FDA-Public Use
  Company Number: PHHY2018BR036232

PATIENT
  Sex: Female

DRUGS (1)
  1. EXELON PATCH [Suspect]
     Active Substance: RIVASTIGMINE
     Indication: AMNESIA
     Dosage: 1 DF, QD
     Route: 062
     Dates: start: 201712, end: 20180205

REACTIONS (2)
  - Amnesia [Not Recovered/Not Resolved]
  - Diverticulitis [Recovering/Resolving]
